FAERS Safety Report 14175199 (Version 1)
Quarter: 2017Q4

REPORT INFORMATION
  Report Type: Spontaneous
  Country: SE (occurrence: SE)
  Receive Date: 20171109
  Receipt Date: 20171109
  Transmission Date: 20180321
  Serious: Yes (Hospitalization, Other)
  Sender: FDA-Public Use
  Company Number: SE-MYLANLABS-2017M1068991

PATIENT
  Age: 20 Year
  Sex: Female
  Weight: 65 kg

DRUGS (2)
  1. LERGIGAN FORTE 50 MG FILMDRAGERADE TABLETTER [Suspect]
     Active Substance: PROMETHAZINE HYDROCHLORIDE
     Indication: ANXIETY
     Dates: start: 201704, end: 201704
  2. ESCITALOPRAM [Concomitant]
     Active Substance: ESCITALOPRAM OXALATE
     Dates: start: 20160124

REACTIONS (3)
  - Amnesia [Recovered/Resolved]
  - Loss of control of legs [Recovered/Resolved]
  - Aphasia [Recovered/Resolved]

NARRATIVE: CASE EVENT DATE: 201704
